FAERS Safety Report 5488599-8 (Version None)
Quarter: 2007Q4

REPORT INFORMATION
  Report Type: 
  Country: None (occurrence: None)
  Receive Date: 20071001
  Receipt Date: 20070706
  Transmission Date: 20080405
  Serious: Yes (Other)
  Sender: FDA-Public Use
  Company Number: 200713781GDS

PATIENT
  Age: 37 Year
  Sex: Male

DRUGS (3)
  1. CIPROFLOXACIN [Suspect]
     Indication: DRUG USE FOR UNKNOWN INDICATION
     Dosage: 750 MG, BID, ORAL
     Route: 048
  2. TEGRETOL [Concomitant]
  3. DEPAKOTE [Concomitant]

REACTIONS (1)
  - MANIA [None]
